FAERS Safety Report 5466785-0 (Version None)
Quarter: 2007Q3

REPORT INFORMATION
  Report Type: 
  Country: None (occurrence: None)
  Receive Date: 20070925
  Receipt Date: 20070918
  Transmission Date: 20080115
  Serious: Yes (Hospitalization)
  Sender: FDA-Public Use
  Company Number: US-JNJFOC-20070904252

PATIENT
  Age: 34 Year
  Sex: Female

DRUGS (1)
  1. LEVAQUIN [Suspect]
     Indication: INFLUENZA LIKE ILLNESS
     Route: 048

REACTIONS (4)
  - HEPATIC ENZYME INCREASED [None]
  - NEUTROPENIA [None]
  - PERITONEAL EFFUSION [None]
  - PNEUMONIA [None]
